FAERS Safety Report 8239776 (Version 5)
Quarter: 2013Q3

REPORT INFORMATION
  Report Type: Report from Study
  Country: DE (occurrence: DE)
  Receive Date: 20111110
  Receipt Date: 20130801
  Transmission Date: 20140515
  Serious: Yes (Hospitalization, Other)
  Sender: FDA-Public Use
  Company Number: DE-ABBOTT-11P-062-0871789-00

PATIENT
  Age: 52 Year
  Sex: Female

DRUGS (7)
  1. HUMIRA 40 MG/0.8 ML PEN [Suspect]
     Indication: CROHN^S DISEASE
     Route: 058
     Dates: start: 20110921, end: 201201
  2. HUMIRA 40 MG/0.8 ML PEN [Suspect]
     Dates: start: 201201, end: 20120201
  3. CORTISONE [Concomitant]
     Indication: PRODUCT USED FOR UNKNOWN INDICATION
  4. CALCIUM [Concomitant]
     Indication: PRODUCT USED FOR UNKNOWN INDICATION
  5. VIT D [Concomitant]
     Indication: PRODUCT USED FOR UNKNOWN INDICATION
  6. IRON [Concomitant]
     Indication: PRODUCT USED FOR UNKNOWN INDICATION
  7. VITAMINS [Concomitant]
     Indication: PRODUCT USED FOR UNKNOWN INDICATION

REACTIONS (7)
  - Relapsing fever [Recovering/Resolving]
  - Crohn^s disease [Recovering/Resolving]
  - Haemorrhage [Unknown]
  - Crohn^s disease [Not Recovered/Not Resolved]
  - Hospitalisation [Unknown]
  - Nasopharyngitis [Unknown]
  - Cerebrovascular accident [Recovering/Resolving]
